FAERS Safety Report 7658412-9 (Version None)
Quarter: 2011Q3

REPORT INFORMATION
  Report Type: 
  Country: None (occurrence: None)
  Receive Date: 20110802
  Receipt Date: 20110719
  Transmission Date: 20111222
  Serious: Yes (Other)
  Sender: FDA-Public Use
  Company Number: FK201101456

PATIENT
  Age: 7 Year
  Sex: Male

DRUGS (3)
  1. DOXORUBICIN HCL [Concomitant]
  2. METHOTREXATE [Suspect]
     Indication: BONE SARCOMA
     Dosage: (12 MG/M2)
  3. CISPLATIN [Suspect]
     Indication: BONE SARCOMA
     Dosage: (120 MG/M2)

REACTIONS (2)
  - SKIN TOXICITY [None]
  - DEAFNESS BILATERAL [None]
